FAERS Safety Report 19955335 (Version 1)
Quarter: 2021Q4

REPORT INFORMATION
  Report Type: Spontaneous
  Country: FR (occurrence: FR)
  Receive Date: 20211013
  Receipt Date: 20211013
  Transmission Date: 20220304
  Serious: Yes (Death)
  Sender: FDA-Public Use
  Company Number: None

PATIENT
  Age: 40 Year
  Sex: Male

DRUGS (8)
  1. BUPRENORPHINE [Suspect]
     Active Substance: BUPRENORPHINE
     Dosage: JUSQU^? 16MG/J
     Route: 045
     Dates: start: 2012, end: 20201212
  2. BUPRENORPHINE [Suspect]
     Active Substance: BUPRENORPHINE
     Route: 042
     Dates: start: 2012, end: 20201212
  3. COCAINE [Suspect]
     Active Substance: COCAINE
     Dosage: NON RENSEIGN?E
     Route: 065
  4. TOBACCO LEAF [Suspect]
     Active Substance: TOBACCO LEAF
     Dosage: 10 CIG/JOUR
     Route: 055
     Dates: start: 1993, end: 20201212
  5. ALCOHOL [Suspect]
     Active Substance: ALCOHOL
     Dosage: JUSQU^? 30U/J
     Route: 048
     Dates: start: 1993, end: 20201212
  6. HEROIN [Suspect]
     Active Substance: DIAMORPHINE
     Dosage: 2 FOIS/J
     Route: 045
     Dates: start: 1996, end: 20201122
  7. HEROIN [Suspect]
     Active Substance: DIAMORPHINE
     Dosage: NON RENSEIGN?E
     Route: 042
     Dates: start: 2000, end: 2012
  8. CANNABIS SATIVA SUBSP. INDICA TOP [Suspect]
     Active Substance: CANNABIS SATIVA SUBSP. INDICA TOP
     Dosage: NON RENSEIGN?E
     Route: 065
     Dates: start: 1995, end: 20201121

REACTIONS (11)
  - Cirrhosis alcoholic [Fatal]
  - Ascites [Fatal]
  - Drug abuse [Fatal]
  - Hypokalaemia [Fatal]
  - Hepatic failure [Fatal]
  - Withdrawal syndrome [Fatal]
  - Haematemesis [Fatal]
  - Tachycardia [Fatal]
  - Pulmonary oedema [Fatal]
  - Jaundice [Fatal]
  - Intentional product use issue [Unknown]

NARRATIVE: CASE EVENT DATE: 20120101
